FAERS Safety Report 15188628 (Version 1)
Quarter: 2018Q3

REPORT INFORMATION
  Report Type: Spontaneous
  Country: US (occurrence: US)
  Receive Date: 20180724
  Receipt Date: 20180724
  Transmission Date: 20181010
  Serious: No
  Sender: FDA-Public Use
  Company Number: US-PFIZER INC-2018295649

PATIENT
  Age: 10 Year
  Sex: Female
  Weight: 25.4 kg

DRUGS (1)
  1. EUCRISA [Suspect]
     Active Substance: CRISABOROLE
     Indication: ECZEMA
     Dosage: UNK, 2X/DAY
     Route: 061
     Dates: start: 201806

REACTIONS (5)
  - Pruritus [Unknown]
  - Application site pain [Unknown]
  - Insomnia [Unknown]
  - Scratch [Recovering/Resolving]
  - Drug ineffective [Unknown]
